FAERS Safety Report 15979045 (Version 1)
Quarter: 2019Q1

REPORT INFORMATION
  Report Type: Report from Study
  Country: IT (occurrence: IT)
  Receive Date: 20190219
  Receipt Date: 20190219
  Transmission Date: 20190418
  Serious: Yes (Other)
  Sender: FDA-Public Use
  Company Number: IT-ROCHE-2263826

PATIENT

DRUGS (1)
  1. BEVACIZUMAB. [Suspect]
     Active Substance: BEVACIZUMAB
     Indication: HEREDITARY HAEMORRHAGIC TELANGIECTASIA
     Route: 065

REACTIONS (15)
  - Gastrointestinal haemorrhage [Unknown]
  - Off label use [Unknown]
  - Intentional product use issue [Unknown]
  - Headache [Unknown]
  - Proteinuria [Unknown]
  - Spinal fracture [Unknown]
  - Arteriovenous malformation [Unknown]
  - Diarrhoea [Unknown]
  - Alopecia [Unknown]
  - Facial pain [Unknown]
  - Fatigue [Unknown]
  - Confusional state [Unknown]
  - Hypertension [Unknown]
  - Arterial thrombosis [Unknown]
  - Arthralgia [Unknown]
